FAERS Safety Report 21996637 (Version 1)
Quarter: 2023Q1

REPORT INFORMATION
  Report Type: Report from Study
  Country: US (occurrence: US)
  Receive Date: 20230215
  Receipt Date: 20230215
  Transmission Date: 20230418
  Serious: Yes (Death)
  Sender: FDA-Public Use
  Company Number: US-MIRATI-MT2023PM03481

PATIENT

DRUGS (18)
  1. KRAZATI [Suspect]
     Active Substance: ADAGRASIB
     Indication: Lung neoplasm malignant
     Dosage: 600 MG, BID
     Route: 048
     Dates: start: 20230113
  2. ASCORBIC ACID [Concomitant]
     Active Substance: ASCORBIC ACID
  3. ASPIRIN [Concomitant]
     Active Substance: ASPIRIN
  4. BELBUCA [Concomitant]
     Active Substance: BUPRENORPHINE HYDROCHLORIDE
  5. MINERALS\VITAMINS [Concomitant]
     Active Substance: MINERALS\VITAMINS
  6. CETIRIZINE [Concomitant]
     Active Substance: CETIRIZINE HYDROCHLORIDE
  7. Sleep Aid [Concomitant]
  8. EFFEXOR [Concomitant]
     Active Substance: VENLAFAXINE HYDROCHLORIDE
  9. FOLIC ACID [Concomitant]
     Active Substance: FOLIC ACID
  10. GABAPENTIN [Concomitant]
     Active Substance: GABAPENTIN
  11. IRON [Concomitant]
     Active Substance: IRON
  12. KLOR-CON [Concomitant]
     Active Substance: POTASSIUM CHLORIDE
  13. LEVBID [Concomitant]
     Active Substance: HYOSCYAMINE SULFATE
  14. LORAZEPAM [Concomitant]
     Active Substance: LORAZEPAM
  15. OMEPRAZOLE [Concomitant]
     Active Substance: OMEPRAZOLE
  16. OXYCODONE [Concomitant]
     Active Substance: OXYCODONE
  17. PROCHLORPERAZINE [Concomitant]
     Active Substance: PROCHLORPERAZINE
  18. SPIRONOLACTONE [Concomitant]
     Active Substance: SPIRONOLACTONE

REACTIONS (1)
  - Death [Fatal]

NARRATIVE: CASE EVENT DATE: 20230130
